FAERS Safety Report 5333939-3 (Version None)
Quarter: 2007Q2

REPORT INFORMATION
  Report Type: 
  Country: None (occurrence: None)
  Receive Date: 20070524
  Receipt Date: 20070515
  Transmission Date: 20071010
  Serious: Yes (Hospitalization)
  Sender: FDA-Public Use
  Company Number: JP-PFIZER INC-2007015393

PATIENT
  Age: 48 Year
  Sex: Female

DRUGS (4)
  1. SERTRALINE [Suspect]
     Indication: DEPRESSION
     Dosage: DAILY DOSE:150MG
     Route: 048
  2. MYSLEE [Suspect]
     Indication: DEPRESSION
     Dosage: DAILY DOSE:5MG
     Route: 048
  3. DEPAS [Suspect]
     Indication: DEPRESSION
     Dosage: DAILY DOSE:3MG
     Route: 048
  4. ALL OTHER THERAPEUTIC PRODUCTS [Concomitant]
     Route: 048

REACTIONS (1)
  - EOSINOPHILIC PNEUMONIA [None]
